FAERS Safety Report 5661476-5 (Version None)
Quarter: 2008Q1

REPORT INFORMATION
  Report Type: 
  Country: None (occurrence: None)
  Receive Date: 20080311
  Receipt Date: 20080304
  Transmission Date: 20080703
  Serious: Yes (Other)
  Sender: FDA-Public Use
  Company Number: US-ALLERGAN-0802635US

PATIENT
  Sex: Female

DRUGS (2)
  1. BOTOX [Suspect]
     Indication: MUSCLE SPASTICITY
     Dosage: 650 UNITS, SINGLE
     Route: 030
     Dates: start: 20071206, end: 20071206
  2. FLUOXETINE [Concomitant]
     Indication: ANTIDEPRESSANT THERAPY
     Dosage: UNK, UNK

REACTIONS (3)
  - DYSPHAGIA [None]
  - DYSPNOEA [None]
  - MASTICATION DISORDER [None]
